APPROVED DRUG PRODUCT: CLINDAMYCIN PHOSPHATE
Active Ingredient: CLINDAMYCIN PHOSPHATE
Strength: EQ 1% BASE
Dosage Form/Route: SOLUTION;TOPICAL
Application: A063304 | Product #001
Applicant: XTTRIUM LABORATORIES INC
Approved: Jul 15, 1997 | RLD: No | RS: No | Type: DISCN